FAERS Safety Report 14642086 (Version 1)
Quarter: 2018Q1

REPORT INFORMATION
  Report Type: Spontaneous
  Country: KR (occurrence: KR)
  Receive Date: 20180315
  Receipt Date: 20180315
  Transmission Date: 20180509
  Serious: Yes (Hospitalization, Other)
  Sender: FDA-Public Use
  Company Number: KR-BAYER-2018-043663

PATIENT
  Age: 75 Year
  Sex: Male

DRUGS (3)
  1. VENTOLIN [Concomitant]
     Active Substance: ALBUTEROL SULFATE
  2. AVELOX [Suspect]
     Active Substance: MOXIFLOXACIN HYDROCHLORIDE
     Dosage: UNK
     Dates: start: 20180219
  3. AVELOX [Suspect]
     Active Substance: MOXIFLOXACIN HYDROCHLORIDE
     Dosage: UNK
     Dates: start: 201712

REACTIONS (8)
  - Cyanosis [None]
  - Swelling face [None]
  - Brain injury [None]
  - Loss of consciousness [None]
  - Skin discolouration [None]
  - Anaphylactic shock [None]
  - Brain death [None]
  - Cardiac arrest [None]

NARRATIVE: CASE EVENT DATE: 201802
